FAERS Safety Report 6003688-7 (Version None)
Quarter: 2008Q4

REPORT INFORMATION
  Report Type: 
  Country: None (occurrence: None)
  Receive Date: 20081216
  Receipt Date: 20080605
  Transmission Date: 20090506
  Serious: No
  Sender: FDA-Public Use
  Company Number: US-AMGEN-US285016

PATIENT
  Sex: Male

DRUGS (9)
  1. ARANESP [Suspect]
     Indication: ANAEMIA
     Route: 065
     Dates: start: 20071226
  2. PROPAFENONE HCL [Concomitant]
     Route: 065
  3. TERAZOSIN HCL [Concomitant]
     Route: 065
  4. ATENOLOL [Concomitant]
     Route: 048
  5. FOSAMAX [Concomitant]
     Route: 065
  6. CALCIUM [Concomitant]
     Route: 048
  7. TRIAMTEREN [Concomitant]
     Route: 065
  8. XALATAN [Concomitant]
  9. INFED [Concomitant]
     Route: 065

REACTIONS (1)
  - ARTHRALGIA [None]
